FAERS Safety Report 6568966-1 (Version None)
Quarter: 2010Q1

REPORT INFORMATION
  Report Type: 
  Country: None (occurrence: None)
  Receive Date: 20100128
  Receipt Date: 20091216
  Transmission Date: 20100710
  Serious: Yes (Congenital Anomaly)
  Sender: FDA-Public Use
  Company Number: AUR-APL-2010-00135

PATIENT
  Sex: Female
  Weight: 3.08 kg

DRUGS (3)
  1. ZIDOVUDINE CAPSULE [Suspect]
     Indication: HIV INFECTION
     Dosage: 600MG-TRANSPLACENT
     Route: 064
  2. VIRACEPT [Suspect]
     Indication: HIV INFECTION
     Dosage: 2500MG-TRANSPLACENT
     Route: 064
  3. LAMIVUDINE [Suspect]
     Indication: HIV INFECTION
     Dosage: 300MG-TRANSPLACENT
     Route: 064

REACTIONS (4)
  - MATERNAL DRUGS AFFECTING FOETUS [None]
  - PREMATURE BABY [None]
  - TRISOMY 21 [None]
  - VENTRICULAR SEPTAL DEFECT [None]
